FAERS Safety Report 14461861 (Version 1)
Quarter: 2018Q1

REPORT INFORMATION
  Report Type: Report from Study
  Country: US (occurrence: US)
  Receive Date: 20180130
  Receipt Date: 20180130
  Transmission Date: 20180509
  Serious: Yes (Other)
  Sender: FDA-Public Use
  Company Number: US-BAYER-2017-251114

PATIENT
  Age: 80 Year
  Sex: Male

DRUGS (1)
  1. NEXAVAR [Suspect]
     Active Substance: SORAFENIB
     Indication: HEPATOCELLULAR CARCINOMA
     Dosage: 400 MG, BID
     Route: 048
     Dates: start: 20171222, end: 20180107

REACTIONS (20)
  - Chromaturia [None]
  - Flatulence [None]
  - Pre-existing condition improved [None]
  - Diarrhoea [Recovered/Resolved]
  - Fatigue [None]
  - Confusional state [None]
  - Abdominal discomfort [Recovered/Resolved]
  - Weight decreased [None]
  - Blood glucose decreased [None]
  - Melaena [Recovered/Resolved]
  - Nausea [Recovered/Resolved]
  - Nausea [None]
  - Decreased appetite [None]
  - Diarrhoea [Recovered/Resolved]
  - Haematemesis [None]
  - Exercise tolerance decreased [None]
  - Blood potassium increased [None]
  - Mastication disorder [None]
  - Renal function test abnormal [None]
  - Dehydration [None]

NARRATIVE: CASE EVENT DATE: 201712
